FAERS Safety Report 10005425 (Version 4)
Quarter: 2014Q2

REPORT INFORMATION
  Report Type: Report from Study
  Country: JP (occurrence: JP)
  Receive Date: 20140312
  Receipt Date: 20140402
  Transmission Date: 20141212
  Serious: Yes (Hospitalization, Other)
  Sender: FDA-Public Use
  Company Number: PHHO2014JP003504

PATIENT
  Age: 71 Year
  Sex: Male
  Weight: 59 kg

DRUGS (3)
  1. AMN107 [Suspect]
     Indication: CHRONIC MYELOID LEUKAEMIA
     Dosage: UNK
     Route: 048
     Dates: start: 20120806, end: 20140303
  2. JANUVIA [Concomitant]
     Indication: DIABETES MELLITUS
     Dosage: 50 MG, UNK
     Route: 048
     Dates: start: 20120903, end: 20140303
  3. URSO [Concomitant]
     Indication: LIVER DISORDER
     Dosage: 300 MG, UNK
     Route: 048
     Dates: start: 20120910, end: 20140303

REACTIONS (3)
  - Renal failure acute [Recovered/Resolved]
  - Cardiac tamponade [Recovered/Resolved]
  - Respiratory failure [Not Recovered/Not Resolved]
